FAERS Safety Report 9351153 (Version 1)
Quarter: 2013Q2

REPORT INFORMATION
  Report Type: Spontaneous
  Country: US (occurrence: US)
  Receive Date: 20130617
  Receipt Date: 20130617
  Transmission Date: 20140414
  Serious: Yes (Other)
  Sender: FDA-Public Use
  Company Number: US-ROCHE-1236001

PATIENT
  Age: 12 Year
  Sex: Male

DRUGS (2)
  1. XOLAIR [Suspect]
     Indication: ASTHMA
     Route: 058
     Dates: start: 20111013
  2. XOLAIR [Suspect]
     Indication: URTICARIA
     Route: 058
     Dates: start: 20111026

REACTIONS (5)
  - Urticaria [Recovering/Resolving]
  - Urticaria [Recovered/Resolved]
  - Urticaria cholinergic [Not Recovered/Not Resolved]
  - Mechanical urticaria [Recovered/Resolved]
  - Blood immunoglobulin E abnormal [Unknown]
